FAERS Safety Report 21709874 (Version 1)
Quarter: 2022Q4

REPORT INFORMATION
  Report Type: Report from Study
  Country: US (occurrence: US)
  Receive Date: 20221210
  Receipt Date: 20221210
  Transmission Date: 20230113
  Serious: Yes (Hospitalization)
  Sender: FDA-Public Use
  Company Number: US-TAKEDA-2022TUS093814

PATIENT
  Sex: Female
  Weight: 132.9 kg

DRUGS (1)
  1. PONATINIB [Suspect]
     Active Substance: PONATINIB
     Indication: Chronic myeloid leukaemia
     Dosage: UNK
     Route: 065
     Dates: start: 20221101

REACTIONS (14)
  - Illness [Unknown]
  - Pyrexia [Unknown]
  - Head injury [Unknown]
  - Spinal column injury [Unknown]
  - Headache [Unknown]
  - Fall [Unknown]
  - Eye irritation [Unknown]
  - Eye pain [Unknown]
  - Somnolence [Unknown]
  - Fatigue [Unknown]
  - Weight increased [Unknown]
  - Memory impairment [Unknown]
  - Pain in extremity [Unknown]
  - Dyspnoea [Unknown]
